FAERS Safety Report 10664138 (Version 2)
Quarter: 2015Q1

REPORT INFORMATION
  Report Type: Spontaneous
  Country: US (occurrence: US)
  Receive Date: 20141219
  Receipt Date: 20150312
  Transmission Date: 20150720
  Serious: Yes (Death, Hospitalization)
  Sender: FDA-Public Use
  Company Number: US-ENDO PHARMACEUTICALS INC.-VALS20140070

PATIENT
  Sex: Male
  Weight: 92.43 kg

DRUGS (1)
  1. VALSTAR [Suspect]
     Active Substance: VALRUBICIN
     Indication: BLADDER CANCER
     Route: 065
     Dates: start: 20141119, end: 20150106

REACTIONS (10)
  - Confusional state [Unknown]
  - Urge incontinence [Recovered/Resolved]
  - Bladder instillation procedure [Recovered/Resolved]
  - Pneumonia [Recovered/Resolved]
  - Respiratory disorder [Fatal]
  - Urinary tract infection [Recovered/Resolved]
  - Instillation site pain [Recovered/Resolved]
  - Lung disorder [Fatal]
  - Fall [Unknown]
  - Underdose [Recovered/Resolved]

NARRATIVE: CASE EVENT DATE: 2014
